FAERS Safety Report 8881856 (Version 2)
Quarter: 2012Q4

REPORT INFORMATION
  Report Type: 
  Country: US (occurrence: US)
  Receive Date: 20121101
  Receipt Date: 20121204
  Transmission Date: 20130627
  Serious: No
  Sender: FDA-Public Use
  Company Number: US-PFIZER INC-2012269302

PATIENT
  Age: 72 Year
  Sex: Female
  Weight: 72.56 kg

DRUGS (6)
  1. COLESTIPOL HCL [Suspect]
     Indication: DIARRHEA
     Dosage: 2 g, 2x/day
     Route: 048
     Dates: start: 20121014, end: 20121025
  2. LOSARTAN [Concomitant]
     Indication: BLOOD PRESSURE HIGH
     Dosage: 1 DF, 1x/day
  3. LOSARTAN [Concomitant]
     Dosage: 100-25/ 1 tab daily
  4. CRESTOR [Concomitant]
     Dosage: 5 mg, 1x/day
  5. PRILOSEC [Concomitant]
     Indication: GERD
     Dosage: 20 mg, daily
  6. LEVSIN [Concomitant]
     Indication: IRRITABLE BOWEL SYNDROME
     Dosage: 0.125 mg, 1x/day
     Route: 060

REACTIONS (5)
  - Off label use [Unknown]
  - Dizziness [Not Recovered/Not Resolved]
  - Chest discomfort [Not Recovered/Not Resolved]
  - Gait disturbance [Not Recovered/Not Resolved]
  - Rash [Not Recovered/Not Resolved]
